FAERS Safety Report 4405727-3 (Version None)
Quarter: 2004Q3

REPORT INFORMATION
  Report Type: 
  Country: None (occurrence: None)
  Receive Date: 20040723
  Receipt Date: 20031202
  Transmission Date: 20050211
  Serious: No
  Sender: FDA-Public Use
  Company Number: US-GLAXOSMITHKLINE-A0441645A

PATIENT
  Age: 72 Year
  Sex: Female

DRUGS (7)
  1. AVANDIA [Suspect]
     Dosage: 4MG PER DAY
     Route: 048
     Dates: start: 20031130
  2. GLUCOTROL XL [Concomitant]
  3. ASPIRIN [Concomitant]
  4. OSCAL [Concomitant]
  5. VITAMIN B COMPLEX CAP [Concomitant]
  6. ZYRTEC [Concomitant]
  7. DIOVAN [Concomitant]

REACTIONS (3)
  - DYSPEPSIA [None]
  - HYPERGLYCAEMIA [None]
  - SWELLING [None]
